FAERS Safety Report 5468449-6 (Version None)
Quarter: 2007Q3

REPORT INFORMATION
  Report Type: 
  Country: None (occurrence: None)
  Receive Date: 20070926
  Receipt Date: 20070924
  Transmission Date: 20080115
  Serious: Yes (Hospitalization)
  Sender: FDA-Public Use
  Company Number: FR-BRISTOL-MYERS SQUIBB COMPANY-13918487

PATIENT
  Sex: Female

DRUGS (6)
  1. ECAZIDE TABS 50 MG/25 MG [Suspect]
     Dosage: 1 DOSAGE FORM = 50 MG/25 MG
     Route: 048
  2. CORDARONE [Suspect]
     Route: 048
  3. AMLOR [Suspect]
     Route: 048
  4. ZOPICLONE [Suspect]
     Route: 048
  5. IXEL [Suspect]
     Route: 048
  6. SERESTA [Suspect]
     Route: 048

REACTIONS (2)
  - DRUG TOXICITY [None]
  - SUICIDE ATTEMPT [None]
